FAERS Safety Report 13892697 (Version 1)
Quarter: 2017Q3

REPORT INFORMATION
  Report Type: Spontaneous
  Country: US (occurrence: US)
  Receive Date: 20170822
  Receipt Date: 20170822
  Transmission Date: 20171127
  Serious: Yes (Life-Threatening, Hospitalization)
  Sender: FDA-Public Use
  Company Number: US-ROCHE-1323260

PATIENT
  Age: 71 Year
  Sex: Female
  Weight: 76 kg

DRUGS (5)
  1. CYCLOPHOSPHAMIDE. [Suspect]
     Active Substance: CYCLOPHOSPHAMIDE
     Indication: BREAST CANCER
     Route: 042
     Dates: start: 20130731, end: 20130912
  2. PACLITAXEL. [Concomitant]
     Active Substance: PACLITAXEL
     Indication: BREAST CANCER
     Route: 042
     Dates: start: 20130926, end: 20131128
  3. HERCEPTIN [Suspect]
     Active Substance: TRASTUZUMAB
     Indication: BREAST CANCER
     Dosage: RECEIVED 11 DOSES?2 MG/KG
     Route: 041
     Dates: start: 20130926, end: 20131206
  4. AMLODIPINE [Concomitant]
     Active Substance: AMLODIPINE BESYLATE
     Indication: HYPERTENSION
     Route: 048
  5. DOXORUBICIN [Concomitant]
     Active Substance: DOXORUBICIN
     Indication: BREAST CANCER
     Dosage: 4 DOSES
     Route: 042
     Dates: start: 20130731, end: 20130912

REACTIONS (2)
  - Pulmonary fibrosis [Not Recovered/Not Resolved]
  - Interstitial lung disease [Unknown]

NARRATIVE: CASE EVENT DATE: 201312
